FAERS Safety Report 6490113-5 (Version None)
Quarter: 2009Q4

REPORT INFORMATION
  Report Type: 
  Country: None (occurrence: None)
  Receive Date: 20091211
  Receipt Date: 20090407
  Transmission Date: 20100525
  Serious: No
  Sender: FDA-Public Use
  Company Number: A0778753A

PATIENT
  Sex: Female

DRUGS (2)
  1. FLOVENT [Suspect]
     Indication: BRONCHIOLITIS
     Dosage: 110MCG UNKNOWN
     Route: 055
  2. FLUCONAZOLE [Concomitant]
     Indication: BRONCHIOLITIS
     Route: 065

REACTIONS (1)
  - DRUG INEFFECTIVE [None]
